FAERS Safety Report 4561597-4 (Version None)
Quarter: 2005Q1

REPORT INFORMATION
  Report Type: 
  Country: None (occurrence: None)
  Receive Date: 20050121
  Receipt Date: 20050107
  Transmission Date: 20050727
  Serious: Yes (Hospitalization)
  Sender: FDA-Public Use
  Company Number: 2004BI001540

PATIENT
  Age: 68 Year
  Sex: Male

DRUGS (8)
  1. AVONEX [Suspect]
     Indication: MULTIPLE SCLEROSIS
     Dosage: 30 UG;QW;IM
     Route: 030
     Dates: start: 20040909, end: 20040101
  2. LESCOL [Concomitant]
  3. OCUVITE [Concomitant]
  4. VIAGRA [Concomitant]
  5. ACTIFED [Concomitant]
  6. SINEMET [Concomitant]
  7. METAMUCIL-2 [Concomitant]
  8. MULTI-VITAMIN [Concomitant]

REACTIONS (4)
  - DRUG INEFFECTIVE [None]
  - MULTIPLE SCLEROSIS RELAPSE [None]
  - MUSCULOSKELETAL DISORDER [None]
  - PHOTOPSIA [None]
